FAERS Safety Report 7630962-0 (Version None)
Quarter: 2011Q3

REPORT INFORMATION
  Report Type: 
  Country: None (occurrence: None)
  Receive Date: 20110725
  Receipt Date: 20110715
  Transmission Date: 20111222
  Serious: Yes (Hospitalization, Other)
  Sender: FDA-Public Use
  Company Number: US-BIOGENIDEC-2005BI006072

PATIENT
  Age: 56 Year
  Sex: Male
  Weight: 147 kg

DRUGS (4)
  1. AVONEX [Suspect]
     Route: 030
     Dates: start: 20030801
  2. ATIVAN [Concomitant]
     Indication: FEELING JITTERY
     Dates: start: 19900101
  3. AVONEX [Suspect]
     Route: 030
     Dates: start: 19970101, end: 20030801
  4. AVONEX [Suspect]
     Indication: MULTIPLE SCLEROSIS
     Route: 030
     Dates: start: 19960101, end: 19970101

REACTIONS (9)
  - FLUID RETENTION [None]
  - BACK PAIN [None]
  - INCREASED TENDENCY TO BRUISE [None]
  - NEUROPATHY PERIPHERAL [None]
  - CYSTITIS [None]
  - THROMBOSIS [None]
  - BODY HEIGHT DECREASED [None]
  - TYPE 2 DIABETES MELLITUS [None]
  - MULTIPLE MYELOMA [None]
